FAERS Safety Report 10335107 (Version 1)
Quarter: 2014Q3

REPORT INFORMATION
  Report Type: Spontaneous
  Country: US (occurrence: None)
  Receive Date: 20140722
  Receipt Date: 20140722
  Transmission Date: 20150326
  Serious: No
  Sender: FDA-Public Use
  Company Number: None

PATIENT
  Age: 43 Year
  Sex: Female
  Weight: 62.6 kg

DRUGS (1)
  1. MEFLOQUINE [Suspect]
     Active Substance: MEFLOQUINE
     Indication: PRODUCT USED FOR UNKNOWN INDICATION
     Dosage: 2 PILLS TOTAL ON 2ND WK. ONCE EVERY WEEK TAKEN BY MOUTH
     Route: 048
     Dates: start: 20140712, end: 20140719

REACTIONS (9)
  - Insomnia [None]
  - Arthralgia [None]
  - Pain in extremity [None]
  - Fatigue [None]
  - Headache [None]
  - Mental disorder [None]
  - Feeling hot [None]
  - Anxiety [None]
  - Paraesthesia [None]

NARRATIVE: CASE EVENT DATE: 20140720
